FAERS Safety Report 13389685 (Version 1)
Quarter: 2017Q1

REPORT INFORMATION
  Report Type: Spontaneous
  Country: US (occurrence: US)
  Receive Date: 20170331
  Receipt Date: 20170331
  Transmission Date: 20170429
  Serious: No
  Sender: FDA-Public Use
  Company Number: US-TEVA-749548ACC

PATIENT
  Sex: Female

DRUGS (6)
  1. CENTRUM [Concomitant]
     Active Substance: VITAMINS
  2. PRAVASTATIN. [Concomitant]
     Active Substance: PRAVASTATIN
  3. ESTRACE [Concomitant]
     Active Substance: ESTRADIOL
  4. COPAXONE [Suspect]
     Active Substance: GLATIRAMER ACETATE
     Indication: MULTIPLE SCLEROSIS
     Route: 058
     Dates: start: 20140529
  5. ADVIL [Concomitant]
     Active Substance: IBUPROFEN
  6. VITAMIN D3 [Concomitant]
     Active Substance: CHOLECALCIFEROL

REACTIONS (3)
  - Injection site reaction [Not Recovered/Not Resolved]
  - Injection site erythema [Not Recovered/Not Resolved]
  - Injection site swelling [Not Recovered/Not Resolved]
